FAERS Safety Report 10658449 (Version 1)
Quarter: 2014Q4

REPORT INFORMATION
  Report Type: Spontaneous
  Country: US (occurrence: US)
  Receive Date: 20141217
  Receipt Date: 20141217
  Transmission Date: 20150529
  Serious: No
  Sender: FDA-Public Use
  Company Number: US-GLAXOSMITHKLINE-A1068081A

PATIENT

DRUGS (8)
  1. HYDROCODONE [Concomitant]
     Active Substance: HYDROCODONE
  2. INSULIN [Concomitant]
     Active Substance: INSULIN NOS
  3. VOTRIENT [Suspect]
     Active Substance: PAZOPANIB HYDROCHLORIDE
     Indication: NEOPLASM MALIGNANT
     Route: 048
     Dates: start: 201311
  4. DIAZEPAM. [Concomitant]
     Active Substance: DIAZEPAM
  5. IBUPROFEN. [Concomitant]
     Active Substance: IBUPROFEN
  6. FUROSEMIDE. [Concomitant]
     Active Substance: FUROSEMIDE
  7. MORPHINE [Concomitant]
     Active Substance: MORPHINE
  8. ATENOLOL. [Concomitant]
     Active Substance: ATENOLOL

REACTIONS (3)
  - Ill-defined disorder [Recovering/Resolving]
  - Diarrhoea [Recovered/Resolved]
  - Memory impairment [Recovering/Resolving]
